FAERS Safety Report 4635272-1 (Version None)
Quarter: 2005Q2

REPORT INFORMATION
  Report Type: 
  Country: None (occurrence: None)
  Receive Date: 20050411
  Receipt Date: 20050331
  Transmission Date: 20051028
  Serious: Yes (Death)
  Sender: FDA-Public Use
  Company Number: 2005-057

PATIENT
  Age: 4 Year
  Sex: Male

DRUGS (7)
  1. CARBOPLATIN [Suspect]
     Indication: BRAIN NEOPLASM MALIGNANT
  2. CISPLATIN [Suspect]
     Indication: BRAIN NEOPLASM MALIGNANT
  3. VINCRISTINE [Suspect]
     Indication: BRAIN NEOPLASM MALIGNANT
  4. CYCLOPHOSPHAMIDE [Suspect]
     Indication: BRAIN NEOPLASM MALIGNANT
  5. ETOPOSIDE [Suspect]
     Indication: BRAIN NEOPLASM MALIGNANT
  6. BUSULFAN [Suspect]
     Indication: BRAIN NEOPLASM MALIGNANT
     Dosage: 150MG/M2
  7. THIOTEPA [Suspect]
     Indication: BRAIN NEOPLASM MALIGNANT
     Dosage: 300 MG/M2

REACTIONS (6)
  - DISEASE PROGRESSION [None]
  - GASTROINTESTINAL HAEMORRHAGE [None]
  - HEPATOTOXICITY [None]
  - PORTAL VEIN THROMBOSIS [None]
  - STEM CELL TRANSPLANT [None]
  - VENOOCCLUSIVE LIVER DISEASE [None]
